FAERS Safety Report 13036392 (Version 2)
Quarter: 2017Q1

REPORT INFORMATION
  Report Type: Spontaneous
  Country: NO (occurrence: NO)
  Receive Date: 20161216
  Receipt Date: 20170111
  Transmission Date: 20170428
  Serious: Yes (Other)
  Sender: FDA-Public Use
  Company Number: NO-BRISTOL-MYERS SQUIBB COMPANY-BMS-2016-107518

PATIENT
  Sex: Male

DRUGS (3)
  1. ABILIFY [Suspect]
     Active Substance: ARIPIPRAZOLE
     Indication: PSYCHOTIC DISORDER
     Dosage: UNK
     Route: 065
  2. RISPERDAL CONSTA [Concomitant]
     Active Substance: RISPERIDONE
     Indication: PSYCHOTIC DISORDER
     Dosage: UNK
     Route: 065
     Dates: start: 20090905
  3. ABILIFY [Suspect]
     Active Substance: ARIPIPRAZOLE
     Indication: PSYCHOTIC DISORDER
     Dosage: UNK
     Route: 065
     Dates: end: 200811

REACTIONS (17)
  - Muscular weakness [Unknown]
  - Asthenia [Unknown]
  - Gastrointestinal pain [Unknown]
  - Mobility decreased [Unknown]
  - Panic reaction [Unknown]
  - Colitis ulcerative [Unknown]
  - Insomnia [Unknown]
  - Weight increased [Unknown]
  - Restlessness [Unknown]
  - Lethargy [Unknown]
  - Claustrophobia [Unknown]
  - Musculoskeletal stiffness [Unknown]
  - Abdominal discomfort [Unknown]
  - Impaired work ability [Unknown]
  - Osteoporosis [Unknown]
  - Product use issue [Unknown]
  - Panic attack [Unknown]

NARRATIVE: CASE EVENT DATE: 2011
